FAERS Safety Report 8654527 (Version 2)
Quarter: 2012Q4

REPORT INFORMATION
  Report Type: 
  Country: US (occurrence: US)
  Receive Date: 20120709
  Receipt Date: 20120829
  Transmission Date: 20130627
  Serious: Yes (Other)
  Sender: FDA-Public Use
  Company Number: US-CELGENEUS-163-21880-12070085

PATIENT
  Age: 47 Year
  Sex: Male

DRUGS (3)
  1. REVLIMID [Suspect]
     Indication: MULTIPLE MYELOMA
     Dosage: 5 Milligram
     Route: 048
     Dates: start: 201011, end: 2010
  2. REVLIMID [Suspect]
     Dosage: 10 Milligram
     Route: 048
     Dates: start: 201012, end: 2011
  3. REVLIMID [Suspect]
     Dosage: 10 Milligram
     Route: 048
     Dates: start: 20110610

REACTIONS (1)
  - Blood testosterone decreased [Unknown]
